FAERS Safety Report 7331007-2 (Version None)
Quarter: 2011Q1

REPORT INFORMATION
  Report Type: 
  Country: None (occurrence: None)
  Receive Date: 20110228
  Receipt Date: 20110228
  Transmission Date: 20110831
  Serious: No
  Sender: FDA-Public Use
  Company Number: None

PATIENT
  Age: 55 Year
  Sex: Female
  Weight: 85.4 kg

DRUGS (2)
  1. ACETYLCYSTEINE SOLUTION, USP 20% -200 MG/ML-, 4 ML VIAL AMERICAN REGEN [Suspect]
     Indication: PROPHYLAXIS
     Dosage: 800 MG Q12H PO
     Route: 048
     Dates: start: 20110225, end: 20110227
  2. ACETYLCYSTEINE SOLUTION, USP 20% -200 MG/ML-, 4 ML VIAL AMERICAN REGEN [Suspect]
     Indication: RENAL IMPAIRMENT
     Dosage: 800 MG Q12H PO
     Route: 048
     Dates: start: 20110225, end: 20110227

REACTIONS (3)
  - PRODUCT PACKAGING ISSUE [None]
  - CIRCUMSTANCE OR INFORMATION CAPABLE OF LEADING TO MEDICATION ERROR [None]
  - MEDICATION ERROR [None]
